FAERS Safety Report 8762354 (Version 1)
Quarter: 2012Q4

REPORT INFORMATION
  Report Type: 
  Country: JP (occurrence: JP)
  Receive Date: 20120830
  Receipt Date: 20120830
  Transmission Date: 20130627
  Serious: Yes (Other)
  Sender: FDA-Public Use
  Company Number: PHHY2012JP073501

PATIENT
  Age: 70 Year
  Sex: Male

DRUGS (5)
  1. WARFARIN [Suspect]
  2. AMPICILLIN [Concomitant]
     Indication: C-REACTIVE PROTEIN INCREASED
  3. SULBACTAM [Concomitant]
     Indication: C-REACTIVE PROTEIN INCREASED
  4. VANCOMYCIN [Concomitant]
     Indication: C-REACTIVE PROTEIN INCREASED
  5. CARBAPENEMS [Concomitant]
     Indication: C-REACTIVE PROTEIN INCREASED

REACTIONS (2)
  - Eosinophilia [Recovered/Resolved]
  - Blood immunoglobulin E increased [Recovered/Resolved]
